FAERS Safety Report 15366193 (Version 1)
Quarter: 2018Q3

REPORT INFORMATION
  Report Type: Spontaneous
  Country: US (occurrence: US)
  Receive Date: 20180910
  Receipt Date: 20180910
  Transmission Date: 20181010
  Serious: Yes (Hospitalization, Other)
  Sender: FDA-Public Use
  Company Number: US-BAYER-2018-163861

PATIENT
  Age: 64 Year
  Sex: Male

DRUGS (3)
  1. SORAFENIB (RAF KINASE INHIBITOR) [Suspect]
     Active Substance: SORAFENIB
     Indication: METASTASES TO LUNG
  2. SUNITINIB [Suspect]
     Active Substance: SUNITINIB
     Dosage: UNK
  3. SORAFENIB (RAF KINASE INHIBITOR) [Suspect]
     Active Substance: SORAFENIB
     Indication: RENAL CELL CARCINOMA
     Dosage: UNK

REACTIONS (16)
  - Thrombocytopenia [None]
  - Condition aggravated [None]
  - Leukopenia [None]
  - Weight decreased [None]
  - Metastases to lung [None]
  - Anxiety [None]
  - Stress [None]
  - Dyspnoea [None]
  - Urine flow decreased [None]
  - Insomnia [None]
  - Anaemia [None]
  - Tinnitus [None]
  - Drug ineffective [None]
  - Renal cell carcinoma [None]
  - Dyspepsia [None]
  - Flank pain [None]
